FAERS Safety Report 9256656 (Version 2)
Quarter: 2013Q2

REPORT INFORMATION
  Report Type: Spontaneous
  Country: GB (occurrence: GB)
  Receive Date: 20130426
  Receipt Date: 20130429
  Transmission Date: 20140414
  Serious: Yes (Disabling, Other)
  Sender: FDA-Public Use
  Company Number: GB-ROCHE-1217171

PATIENT
  Age: 73 Year
  Sex: Male

DRUGS (14)
  1. ROACTEMRA [Suspect]
     Indication: RHEUMATOID ARTHRITIS
     Route: 042
     Dates: start: 20121026, end: 20121219
  2. METHOTREXATE [Concomitant]
     Dosage: WEEKLY
     Route: 048
     Dates: start: 20120117
  3. FOLIC ACID [Concomitant]
     Dosage: WEEKLY
     Route: 048
     Dates: start: 20120117
  4. PREDNISOLONE [Concomitant]
     Indication: RHEUMATOID ARTHRITIS
     Route: 048
  5. LANSOPRAZOLE [Concomitant]
     Indication: PROPHYLAXIS
     Route: 048
  6. METFORMIN [Concomitant]
     Indication: DIABETES MELLITUS
     Route: 048
  7. ASPIRIN [Concomitant]
     Route: 065
  8. SIMVASTATIN [Concomitant]
     Route: 065
  9. SENNA [Concomitant]
     Route: 065
  10. FRUSEMIDE [Concomitant]
     Dosage: DAILY
     Route: 065
  11. RAMIPRIL [Concomitant]
     Dosage: EVERY DAY
     Route: 065
  12. DOXAZOSIN [Concomitant]
     Dosage: EVERY DAY
     Route: 065
  13. BISOPROLOL [Concomitant]
     Dosage: EVERY DAY
     Route: 065
  14. ISMN [Concomitant]
     Dosage: MR, EVERY DAY
     Route: 065

REACTIONS (2)
  - Cutaneous vasculitis [Recovered/Resolved]
  - Prostate cancer recurrent [Not Recovered/Not Resolved]
